FAERS Safety Report 20884918 (Version 1)
Quarter: 2022Q2

REPORT INFORMATION
  Report Type: Spontaneous
  Country: US (occurrence: US)
  Receive Date: 20220527
  Receipt Date: 20220527
  Transmission Date: 20220720
  Serious: No
  Sender: FDA-Public Use
  Company Number: US-ESPERIONTHERAPEUTICS-2022USA00673

PATIENT
  Age: 67 Year
  Sex: Female
  Weight: 74.376 kg

DRUGS (1)
  1. NEXLETOL [Suspect]
     Active Substance: BEMPEDOIC ACID
     Indication: Blood cholesterol increased
     Dosage: 180 MILLIGRAM, QD
     Route: 048
     Dates: start: 202201

REACTIONS (1)
  - Back pain [Not Recovered/Not Resolved]
